FAERS Safety Report 5713230-3 (Version None)
Quarter: 2008Q2

REPORT INFORMATION
  Report Type: 
  Country: None (occurrence: None)
  Receive Date: 20080422
  Receipt Date: 19981221
  Transmission Date: 20081010
  Serious: Yes (Death)
  Sender: FDA-Public Use
  Company Number: DE-ROCHE-111121

PATIENT
  Sex: Male
  Weight: 86 kg

DRUGS (5)
  1. TORSEMIDE [Suspect]
     Route: 048
     Dates: start: 19980604, end: 19981115
  2. FUROSEMIDE [Concomitant]
     Dates: end: 19980604
  3. TARIVID [Concomitant]
     Dates: end: 19981115
  4. PANTOPRAZOL [Concomitant]
     Dates: end: 19981115
  5. LACTULOSE [Concomitant]
     Dates: end: 19981115

REACTIONS (1)
  - DEATH [None]
